FAERS Safety Report 14474912 (Version 2)
Quarter: 2019Q4

REPORT INFORMATION
  Report Type: Spontaneous
  Country: US (occurrence: US)
  Receive Date: 20180201
  Receipt Date: 20191018
  Transmission Date: 20200122
  Serious: Yes (Other)
  Sender: FDA-Public Use
  Company Number: US-PFIZER INC-2018045133

PATIENT
  Age: 49 Year
  Sex: Male

DRUGS (10)
  1. CIALIS [Suspect]
     Active Substance: TADALAFIL
     Dosage: 5 MG, AS NEEDED
     Route: 048
     Dates: start: 20110718, end: 20110818
  2. VIAGRA [Suspect]
     Active Substance: SILDENAFIL CITRATE
     Dosage: 50 MG, AS NEEDED
     Route: 048
     Dates: start: 20091228, end: 20101010
  3. KRILL OIL [Concomitant]
     Active Substance: DIETARY SUPPLEMENT\KRILL OIL
     Indication: CARDIOVASCULAR EVENT PROPHYLAXIS
     Dosage: UNK
     Dates: start: 2012
  4. CIALIS [Suspect]
     Active Substance: TADALAFIL
     Dosage: 5 MG, AS NEEDED
     Route: 048
     Dates: start: 20110518, end: 20110531
  5. METOPROLOL. [Concomitant]
     Active Substance: METOPROLOL
     Indication: BLOOD PRESSURE INCREASED
     Dosage: UNK
     Dates: start: 2012
  6. VIAGRA [Suspect]
     Active Substance: SILDENAFIL CITRATE
     Indication: ERECTILE DYSFUNCTION
     Dosage: UNK
     Route: 048
     Dates: start: 20040213, end: 20040313
  7. CIALIS [Suspect]
     Active Substance: TADALAFIL
     Indication: ERECTILE DYSFUNCTION
     Dosage: 20 MG, AS NEEDED
     Route: 048
     Dates: end: 20051215
  8. CIALIS [Suspect]
     Active Substance: TADALAFIL
     Dosage: 20 MG, AS NEEDED
     Route: 048
     Dates: start: 20081202, end: 20090213
  9. ASPIRIN. [Concomitant]
     Active Substance: ASPIRIN
     Indication: THROMBOSIS PROPHYLAXIS
     Dosage: UNK
     Dates: start: 2012
  10. VITAMIN D [Concomitant]
     Active Substance: VITAMIN D NOS
     Indication: ROUTINE HEALTH MAINTENANCE
     Dosage: UNK

REACTIONS (1)
  - Malignant melanoma in situ [Unknown]

NARRATIVE: CASE EVENT DATE: 20040914
